FAERS Safety Report 12712967 (Version 4)
Quarter: 2018Q3

REPORT INFORMATION
  Report Type: Spontaneous
  Country: US (occurrence: US)
  Receive Date: 20160902
  Receipt Date: 20180908
  Transmission Date: 20181010
  Serious: Yes (Hospitalization, Other)
  Sender: FDA-Public Use
  Company Number: US-009507513-1609USA001268

PATIENT
  Sex: Female
  Weight: 79.36 kg

DRUGS (6)
  1. OLMESARTAN MEDOXOMIL (+) HYDROCHLOROTHIAZIDE [Suspect]
     Active Substance: HYDROCHLOROTHIAZIDE\OLMESARTAN MEDOXOMIL
     Indication: HYPERTENSION
     Dosage: 40/12.5 MG, QD
     Route: 065
     Dates: start: 20050101, end: 2015
  2. PAXIL [Concomitant]
     Active Substance: PAROXETINE HYDROCHLORIDE
     Dosage: 10 MG, UNK
     Route: 065
     Dates: start: 20121004
  3. ZOCOR [Concomitant]
     Active Substance: SIMVASTATIN
     Dosage: 40 MG, UNK
     Route: 065
     Dates: start: 20100923
  4. OLMESARTAN MEDOXOMIL (+) HYDROCHLOROTHIAZIDE [Suspect]
     Active Substance: HYDROCHLOROTHIAZIDE\OLMESARTAN MEDOXOMIL
     Dosage: 40/12.5 MG, BID
     Route: 065
  5. LISINOPRIL. [Suspect]
     Active Substance: LISINOPRIL
     Indication: HYPERTENSION
     Dosage: 10 MG, QD
     Route: 048
  6. PIROXICAM. [Concomitant]
     Active Substance: PIROXICAM
     Dosage: 10 MG, UNK
     Route: 065
     Dates: start: 20121004

REACTIONS (8)
  - Gastrooesophageal reflux disease [Unknown]
  - Helicobacter infection [Recovering/Resolving]
  - Sprue-like enteropathy [Not Recovered/Not Resolved]
  - Dyspnoea [Recovered/Resolved]
  - Dizziness [Recovered/Resolved]
  - Irritable bowel syndrome [Not Recovered/Not Resolved]
  - Acute kidney injury [Unknown]
  - Depression [Recovered/Resolved]

NARRATIVE: CASE EVENT DATE: 2009
